FAERS Safety Report 7883393-2 (Version None)
Quarter: 2011Q4

REPORT INFORMATION
  Report Type: 
  Country: None (occurrence: None)
  Receive Date: 20111102
  Receipt Date: 20111021
  Transmission Date: 20120403
  Serious: Yes (Hospitalization, Other)
  Sender: FDA-Public Use
  Company Number: US-BAYER-2011-032054

PATIENT
  Age: 24 Year
  Sex: Female
  Weight: 77 kg

DRUGS (4)
  1. CEPHALEXIN [Concomitant]
  2. NADOLOL [Concomitant]
  3. YAZ [Suspect]
     Dosage: UNK
     Dates: start: 20070501, end: 20080801
  4. YASMIN [Suspect]
     Dosage: UNK
     Dates: start: 20040721, end: 20070724

REACTIONS (6)
  - INJURY [None]
  - PULMONARY EMBOLISM [None]
  - PAIN [None]
  - THROMBOSIS [None]
  - PULMONARY INFARCTION [None]
  - GALLBLADDER DISORDER [None]
